FAERS Safety Report 10151194 (Version 1)
Quarter: 2014Q2

REPORT INFORMATION
  Report Type: Spontaneous
  Country: US (occurrence: US)
  Receive Date: 20140502
  Receipt Date: 20140502
  Transmission Date: 20141212
  Serious: No
  Sender: FDA-Public Use
  Company Number: US-ASTRAZENECA-2014SE05336

PATIENT
  Age: 84 Year
  Sex: Male

DRUGS (3)
  1. PRILOSEC OTC [Suspect]
     Route: 048
     Dates: start: 20140111, end: 20140121
  2. SIMVASTATIN [Concomitant]
     Dosage: UNKNOWN
  3. NIFEDIPINE ER [Concomitant]
     Dosage: UNKNOWN

REACTIONS (3)
  - Abdominal pain upper [Recovered/Resolved]
  - Faeces soft [Not Recovered/Not Resolved]
  - Frequent bowel movements [Not Recovered/Not Resolved]
